FAERS Safety Report 4466073-5 (Version None)
Quarter: 2004Q3

REPORT INFORMATION
  Report Type: 
  Country: None (occurrence: None)
  Receive Date: 20040930
  Receipt Date: 20040930
  Transmission Date: 20050211
  Serious: Yes (Other)
  Sender: FDA-Public Use
  Company Number: None

PATIENT
  Sex: Male
  Weight: 100.6985 kg

DRUGS (9)
  1. METFORMIN HCL [Suspect]
     Indication: DIABETES MELLITUS NON-INSULIN-DEPENDENT
     Dosage: 500MG TWICE DAILY ORAL
     Route: 048
     Dates: start: 20040903, end: 20040929
  2. METFORMIN HCL [Suspect]
     Dosage: 500MG 2 AM 2 PM ORAL
  3. ZYRTEC [Concomitant]
  4. DIPHENHYDRAMINE HCL [Concomitant]
  5. ZANTAC [Concomitant]
  6. PEPCID [Concomitant]
  7. NAPROXEN [Concomitant]
  8. ASPIRIN [Concomitant]
  9. GLUCOSAMINE/CHONDROITIN [Concomitant]

REACTIONS (4)
  - ABDOMINAL PAIN UPPER [None]
  - CONSTIPATION [None]
  - DIARRHOEA [None]
  - FLATULENCE [None]
